FAERS Safety Report 10691171 (Version 2)
Quarter: 2015Q1

REPORT INFORMATION
  Report Type: Spontaneous
  Country: GR (occurrence: GR)
  Receive Date: 20150105
  Receipt Date: 20150113
  Transmission Date: 20150720
  Serious: Yes (Death, Hospitalization)
  Sender: FDA-Public Use
  Company Number: PHHY2014GR169338

PATIENT
  Age: 75 Year
  Sex: Female

DRUGS (1)
  1. ENOXAPARIN SODIUM. [Suspect]
     Active Substance: ENOXAPARIN SODIUM
     Indication: ATRIAL FIBRILLATION
     Dosage: 60 MG, Q12H
     Route: 065

REACTIONS (6)
  - Retroperitoneal haematoma [Fatal]
  - Tachycardia [Fatal]
  - Cardiac arrest [Fatal]
  - Haematuria [Fatal]
  - Abdominal mass [Fatal]
  - Abdominal pain [Fatal]
